FAERS Safety Report 4463764-7 (Version None)
Quarter: 2004Q3

REPORT INFORMATION
  Report Type: 
  Country: None (occurrence: None)
  Receive Date: 20040929
  Receipt Date: 20040914
  Transmission Date: 20050211
  Serious: Yes (Disabling)
  Sender: FDA-Public Use
  Company Number: 2004EU001708

PATIENT
  Age: 65 Year
  Sex: Female

DRUGS (4)
  1. PROGRAF [Suspect]
     Indication: RENAL TRANSPLANT
     Dosage: 8.00 MG,  ORAL  : 2.00 MG, BID, ORAL
     Route: 048
     Dates: start: 20040331
  2. PREDNISONE [Concomitant]
  3. TORSEMIDE [Concomitant]
  4. ESOMEPRAZOLE [Concomitant]

REACTIONS (4)
  - ALOPECIA [None]
  - LYMPHOEDEMA [None]
  - SCLERODERMA [None]
  - TRANSPLANT REJECTION [None]
